FAERS Safety Report 4571134-6 (Version None)
Quarter: 2005Q1

REPORT INFORMATION
  Report Type: 
  Country: None (occurrence: None)
  Receive Date: 20050202
  Receipt Date: 20050121
  Transmission Date: 20050727
  Serious: Yes (Hospitalization)
  Sender: FDA-Public Use
  Company Number: 2003164600NO

PATIENT
  Age: 75 Year
  Sex: Female

DRUGS (3)
  1. SULFASALAZINE [Suspect]
     Indication: COLITIS
     Dosage: 2 GRAM (1 GRAM,1 IN 2 D), ORAL
     Route: 048
     Dates: start: 20030212, end: 20030309
  2. ESOMEPRAZOLE (ESOMEPRAZOLE) [Concomitant]
  3. PANTOPRAZOLE SODIUM [Concomitant]

REACTIONS (30)
  - ABNORMAL SENSATION IN EYE [None]
  - ALANINE AMINOTRANSFERASE INCREASED [None]
  - ARTHRALGIA [None]
  - ASPARTATE AMINOTRANSFERASE INCREASED [None]
  - BLOOD ALKALINE PHOSPHATASE INCREASED [None]
  - BLOOD BILIRUBIN INCREASED [None]
  - CONJUNCTIVITIS [None]
  - DEHYDRATION [None]
  - DRUG HYPERSENSITIVITY [None]
  - ERYTHEMA [None]
  - FATIGUE [None]
  - GAMMA-GLUTAMYLTRANSFERASE INCREASED [None]
  - GENERAL PHYSICAL HEALTH DETERIORATION [None]
  - GLAUCOMA [None]
  - HEPATOCELLULAR DAMAGE [None]
  - KERATITIS [None]
  - MUSCULOSKELETAL STIFFNESS [None]
  - MYALGIA [None]
  - ORAL MUCOSAL BLISTERING [None]
  - PHARYNGOLARYNGEAL PAIN [None]
  - PHOTOSENSITIVITY REACTION [None]
  - PURULENCE [None]
  - RASH MACULO-PAPULAR [None]
  - RASH PRURITIC [None]
  - RASH VESICULAR [None]
  - SICCA SYNDROME [None]
  - SKIN LESION [None]
  - STEVENS-JOHNSON SYNDROME [None]
  - VISUAL ACUITY REDUCED [None]
  - WALKING AID USER [None]
